FAERS Safety Report 14517410 (Version 1)
Quarter: 2018Q1

REPORT INFORMATION
  Report Type: Spontaneous
  Country: US (occurrence: US)
  Receive Date: 20180209
  Receipt Date: 20180209
  Transmission Date: 20180509
  Serious: No
  Sender: FDA-Public Use
  Company Number: None

PATIENT
  Age: 55 Year
  Sex: Female

DRUGS (2)
  1. TACROLIMUS 1MG ACCORD [Suspect]
     Active Substance: TACROLIMUS
     Indication: TRANSPLANT
     Route: 048
     Dates: start: 20171027
  2. TACROLIMUS 0.5MG ACCORD [Suspect]
     Active Substance: TACROLIMUS
     Indication: DERMATITIS ATOPIC
     Route: 048
     Dates: start: 20171027

REACTIONS (2)
  - Product substitution issue [None]
  - Tremor [None]

NARRATIVE: CASE EVENT DATE: 20171027
